FAERS Safety Report 8415635-9 (Version None)
Quarter: 2012Q2

REPORT INFORMATION
  Report Type: 
  Country: None (occurrence: None)
  Receive Date: 20120530
  Receipt Date: 20120521
  Transmission Date: 20120825
  Serious: Yes (Other)
  Sender: FDA-Public Use
  Company Number: AUR-APL-2012-00977

PATIENT
  Age: 58 Year
  Sex: Male
  Weight: 77.1 kg

DRUGS (6)
  1. PERCODAN [Suspect]
     Indication: BACK PAIN
     Dosage: (3 IN 1 D), ORAL
     Route: 048
     Dates: start: 20110101
  2. PERCODAN [Suspect]
     Indication: PAIN IN EXTREMITY
     Dosage: (3 IN 1 D), ORAL
     Route: 048
     Dates: start: 20110101
  3. CHANTIX [Suspect]
     Indication: SMOKING CESSATION THERAPY
     Dosage: (0.5 MG, 1 D), ORAL 2 MG (1 MG, 2 IN 1 D), ORAL
     Route: 048
     Dates: start: 20110511
  4. CHANTIX [Suspect]
     Indication: SMOKING CESSATION THERAPY
     Dosage: (0.5 MG, 1 D), ORAL 2 MG (1 MG, 2 IN 1 D), ORAL
     Route: 048
     Dates: end: 20110728
  5. MIRTAZAPINE [Suspect]
     Indication: DEPRESSION
     Dosage: (15 MG, 1 D), UNKNOWN
     Dates: start: 20110101
  6. PRILOSEC [Concomitant]

REACTIONS (11)
  - VERBAL ABUSE [None]
  - PRODUCT QUALITY ISSUE [None]
  - DEPRESSION [None]
  - BACK PAIN [None]
  - AMNESIA [None]
  - DRUG INEFFECTIVE [None]
  - PAIN IN EXTREMITY [None]
  - ABNORMAL BEHAVIOUR [None]
  - ABDOMINAL PAIN UPPER [None]
  - DISEASE RECURRENCE [None]
  - INADEQUATE ANALGESIA [None]
